FAERS Safety Report 5988438-2 (Version None)
Quarter: 2008Q4

REPORT INFORMATION
  Report Type: 
  Country: None (occurrence: None)
  Receive Date: 20081210
  Receipt Date: 20081204
  Transmission Date: 20090506
  Serious: Yes (Hospitalization)
  Sender: FDA-Public Use
  Company Number: US-BRISTOL-MYERS SQUIBB COMPANY-14431282

PATIENT
  Age: 78 Year
  Sex: Male
  Weight: 58 kg

DRUGS (2)
  1. CISPLATIN [Suspect]
     Indication: OESOPHAGEAL CARCINOMA
     Dosage: START DATE OF FIRST COURSE = 20OCT08
     Dates: start: 20081124, end: 20081124
  2. TAXOL [Suspect]
     Indication: OESOPHAGEAL CARCINOMA
     Dosage: START DATE OF FIRST COURSE=20OCT08
     Dates: start: 20081124, end: 20081124

REACTIONS (3)
  - DEHYDRATION [None]
  - DIZZINESS [None]
  - DYSPHAGIA [None]
